FAERS Safety Report 8603241-2 (Version None)
Quarter: 2012Q3

REPORT INFORMATION
  Report Type: 
  Country: None (occurrence: None)
  Receive Date: 20120817
  Receipt Date: 20120808
  Transmission Date: 20120928
  Serious: Yes (Hospitalization)
  Sender: FDA-Public Use
  Company Number: US-TEVA-353014USA

PATIENT
  Sex: Male
  Weight: 92.198 kg

DRUGS (5)
  1. CARBOPLATIN [Suspect]
     Indication: SALIVARY GLAND CANCER
  2. FINASTERIDE [Concomitant]
  3. OGX-011 [Suspect]
     Indication: SALIVARY GLAND CANCER
     Dosage: DOSE 1
     Route: 042
     Dates: start: 20120806, end: 20120806
  4. PACLITAXEL [Suspect]
     Indication: SALIVARY GLAND CANCER
  5. FLOMAX [Concomitant]

REACTIONS (1)
  - HYPOTENSION [None]
